FAERS Safety Report 9696253 (Version 2)
Quarter: 2013Q4

REPORT INFORMATION
  Report Type: Spontaneous
  Country: DE (occurrence: None)
  Receive Date: 20131115
  Receipt Date: 20131121
  Transmission Date: 20140711
  Serious: Yes (Hospitalization)
  Sender: FDA-Public Use
  Company Number: AUR-APL-2013-09425

PATIENT
  Age: 56 Year
  Sex: Female
  Weight: 105 kg

DRUGS (3)
  1. METFORMIN [Suspect]
     Indication: TYPE 2 DIABETES MELLITUS
     Route: 048
  2. FORXIGA [Suspect]
     Indication: PRODUCT USED FOR UNKNOWN INDICATION
     Dosage: 10 MG, 1 IN 1 D
     Route: 048
  3. PROPAFENON [Concomitant]

REACTIONS (5)
  - Metabolic acidosis [None]
  - Pneumonia [None]
  - Sepsis [None]
  - Dehydration [None]
  - Brain stem infarction [None]
